FAERS Safety Report 5814487-0 (Version None)
Quarter: 2008Q3

REPORT INFORMATION
  Report Type: 
  Country: None (occurrence: None)
  Receive Date: 20080715
  Receipt Date: 20080704
  Transmission Date: 20090109
  Serious: Yes (Death, Life-Threatening, Hospitalization)
  Sender: FDA-Public Use
  Company Number: 2008AL007970

PATIENT
  Age: 70 Year
  Sex: Male

DRUGS (6)
  1. PROPRANOLOL [Suspect]
     Indication: HYPERTENSION
     Dosage: 80 MG; QD; PO
     Route: 048
     Dates: start: 20010101, end: 20061005
  2. LANSOPRAZOLE [Concomitant]
  3. THIAMINE [Concomitant]
  4. CETIRIZINE HCL [Concomitant]
  5. ASCORBIC ACID [Concomitant]
  6. VITAMIN B [Concomitant]

REACTIONS (2)
  - THROMBOCYTOPENIA [None]
  - THROMBOTIC STROKE [None]
